FAERS Safety Report 9632770 (Version 2)
Quarter: 2013Q4

REPORT INFORMATION
  Report Type: Spontaneous
  Country: IL (occurrence: IL)
  Receive Date: 20131018
  Receipt Date: 20131107
  Transmission Date: 20140711
  Serious: Yes (Death)
  Sender: FDA-Public Use
  Company Number: IL-ROCHE-1290717

PATIENT
  Sex: Male

DRUGS (2)
  1. DABRAFENIB [Suspect]
     Indication: MALIGNANT MELANOMA
     Route: 065
  2. EVEROLIMUS [Concomitant]

REACTIONS (2)
  - Renal failure [Fatal]
  - Disease progression [Unknown]
